FAERS Safety Report 5647492-8 (Version None)
Quarter: 2008Q1

REPORT INFORMATION
  Report Type: 
  Country: None (occurrence: None)
  Receive Date: 20080303
  Receipt Date: 20080228
  Transmission Date: 20080703
  Serious: Yes (Death, Disabling)
  Sender: FDA-Public Use
  Company Number: JP-SANOFI-SYNTHELABO-F01200800339

PATIENT
  Sex: Male

DRUGS (5)
  1. OMEPRAL [Concomitant]
     Dosage: 10 MG
     Route: 048
     Dates: start: 20070807, end: 20071002
  2. URINORM [Concomitant]
     Dosage: 50 MG
     Route: 048
     Dates: start: 20070807, end: 20071002
  3. VANARL [Concomitant]
     Dosage: 3 MG
     Route: 048
     Dates: start: 20070807, end: 20071002
  4. ALINAMIN F [Concomitant]
     Dosage: 25 MG
     Route: 048
     Dates: start: 20070807, end: 20071002
  5. CLOPIDOGREL [Suspect]
     Indication: CEREBRAL ISCHAEMIA
     Route: 048
     Dates: start: 20070816, end: 20070910

REACTIONS (1)
  - RENAL IMPAIRMENT [None]
